FAERS Safety Report 5315620-X (Version None)
Quarter: 2007Q2

REPORT INFORMATION
  Report Type: 
  Country: None (occurrence: None)
  Receive Date: 20070503
  Receipt Date: 20070424
  Transmission Date: 20071010
  Serious: Yes (Hospitalization)
  Sender: FDA-Public Use
  Company Number: 2007GB00874

PATIENT
  Age: 68 Year
  Sex: Male
  Weight: 84 kg

DRUGS (3)
  1. BICALUTAMIDE [Suspect]
     Route: 048
     Dates: start: 20070328, end: 20070411
  2. TRIMETHOPRIM [Concomitant]
     Indication: PROSTATE CANCER
     Route: 048
  3. ZOLADEX [Concomitant]
     Indication: PROSTATE CANCER

REACTIONS (1)
  - CARDIAC FAILURE [None]
